FAERS Safety Report 10742133 (Version 1)
Quarter: 2015Q1

REPORT INFORMATION
  Report Type: Report from Study
  Country: FR (occurrence: FR)
  Receive Date: 20150127
  Receipt Date: 20150127
  Transmission Date: 20150721
  Serious: Yes (Death, Life-Threatening, Hospitalization)
  Sender: FDA-Public Use
  Company Number: FR-CELGENE-056-00000-12081993

PATIENT
  Age: 79 Year
  Sex: Male
  Weight: 65 kg

DRUGS (11)
  1. DANATROL [Concomitant]
     Active Substance: DANAZOL
     Indication: THROMBOCYTOPENIA
     Route: 048
     Dates: start: 20080611
  2. ALTEIS [Concomitant]
     Active Substance: OLMESARTAN MEDOXOMIL
     Indication: HYPERTENSION
     Route: 048
     Dates: start: 2010
  3. VIDAZA [Suspect]
     Active Substance: AZACITIDINE
     Indication: MYELODYSPLASTIC SYNDROME
     Route: 058
     Dates: start: 20120806, end: 20120811
  4. INEXIUM [Concomitant]
     Active Substance: ESOMEPRAZOLE
     Indication: HYPERTENSION
     Route: 048
     Dates: start: 2000
  5. VIDAZA [Suspect]
     Active Substance: AZACITIDINE
     Dosage: 11.4286 MILLIGRAM
     Route: 058
     Dates: start: 20120806, end: 20120811
  6. ATARAX [Concomitant]
     Active Substance: HYDROXYZINE\HYDROXYZINE HYDROCHLORIDE
     Indication: PRODUCT USED FOR UNKNOWN INDICATION
     Route: 065
  7. VIDAZA [Suspect]
     Active Substance: AZACITIDINE
     Route: 058
     Dates: start: 20120903, end: 20120905
  8. GAVISCON [Concomitant]
     Active Substance: ALUMINUM HYDROXIDE\MAGNESIUM CARBONATE
     Indication: PRODUCT USED FOR UNKNOWN INDICATION
     Route: 065
  9. EXACTYL [Concomitant]
     Indication: PRODUCT USED FOR UNKNOWN INDICATION
     Dosage: 1 VIAL/DAY
     Route: 065
  10. TRINITRINE [Concomitant]
     Active Substance: NITROGLYCERIN
     Indication: CHEST PAIN
     Route: 065
  11. KALEORID [Concomitant]
     Active Substance: POTASSIUM CHLORIDE
     Indication: PRODUCT USED FOR UNKNOWN INDICATION
     Dosage: 2000
     Route: 065

REACTIONS (3)
  - Acute pulmonary oedema [Recovered/Resolved]
  - Cerebral haemorrhage [Fatal]
  - Rectal haemorrhage [Recovered/Resolved]

NARRATIVE: CASE EVENT DATE: 20120809
